FAERS Safety Report 9282329 (Version 2)
Quarter: 2013Q4

REPORT INFORMATION
  Report Type: Spontaneous
  Country: US (occurrence: US)
  Receive Date: 20130510
  Receipt Date: 20131022
  Transmission Date: 20140711
  Serious: Yes (Hospitalization, Other)
  Sender: FDA-Public Use
  Company Number: US-BAYER-2013-057500

PATIENT
  Age: 27 Year
  Sex: Female
  Weight: 65.76 kg

DRUGS (8)
  1. MIRENA [Suspect]
     Indication: CONTRACEPTION
     Dosage: 20 MCG/24HR, CONT
     Route: 015
     Dates: start: 200905, end: 201105
  2. SYNTHROID [Concomitant]
     Indication: HYPERTHYROIDISM
     Dosage: UNK
     Dates: start: 2003
  3. MOTRIN [Concomitant]
  4. ADVIL [Concomitant]
  5. MORPHINE [Concomitant]
  6. ZOFRAN [Concomitant]
  7. ROCEPHIN [Concomitant]
     Dosage: 1 G, UNK
     Route: 042
  8. FLAGYL [Concomitant]
     Dosage: 1 G, UNK

REACTIONS (12)
  - Uterine perforation [None]
  - Genital haemorrhage [None]
  - Pelvic pain [None]
  - Injury [None]
  - Pain [None]
  - Emotional distress [None]
  - Medical device complication [None]
  - Internal injury [None]
  - Depression [None]
  - Anxiety [None]
  - Medical device discomfort [None]
  - Fear [None]
